FAERS Safety Report 12677985 (Version 2)
Quarter: 2016Q3

REPORT INFORMATION
  Report Type: Spontaneous
  Country: US (occurrence: US)
  Receive Date: 20160823
  Receipt Date: 20160831
  Transmission Date: 20161109
  Serious: Yes (Disabling, Other)
  Sender: FDA-Public Use
  Company Number: US-UCBSA-2016031845

PATIENT
  Age: 34 Year
  Sex: Female
  Weight: 59 kg

DRUGS (18)
  1. VIMPAT [Suspect]
     Active Substance: LACOSAMIDE
     Indication: OFF LABEL USE
     Dosage: 100 MG, ONCE DAILY (QD) DECREASED
     Route: 048
     Dates: start: 201608, end: 201608
  2. FLUDROCORTISONE [Concomitant]
     Active Substance: FLUDROCORTISONE
     Indication: PRODUCT USED FOR UNKNOWN INDICATION
     Dosage: 0.1 MG, ONCE DAILY (QD) 1 PO
     Route: 048
     Dates: start: 2013
  3. XOPENEX [Concomitant]
     Active Substance: LEVALBUTEROL HYDROCHLORIDE
     Indication: ASTHMA
     Dosage: 1 PUFF PRN
     Dates: start: 2014
  4. MIDODRINE [Concomitant]
     Active Substance: MIDODRINE
     Indication: PRODUCT USED FOR UNKNOWN INDICATION
     Dosage: 5 MG, 3X/DAY (TID) 1 PO
     Dates: start: 2015
  5. ZYRTEC [Concomitant]
     Active Substance: CETIRIZINE HYDROCHLORIDE
     Indication: HYPERSENSITIVITY
     Dosage: 10 MG, 3X/DAY (TID)
     Route: 048
     Dates: start: 2012
  6. NASALCROM [Concomitant]
     Active Substance: CROMOLYN SODIUM
     Indication: HYPERSENSITIVITY
     Dosage: 2 SPRAYS EACH NOSTRIL
     Dates: start: 2012
  7. MIRTAZAPINE. [Concomitant]
     Active Substance: MIRTAZAPINE
     Indication: SLEEP DISORDER
     Dosage: 30 MG, ONCE DAILY (QD)
     Route: 048
     Dates: start: 2004
  8. SYMBICORT [Concomitant]
     Active Substance: BUDESONIDE\FORMOTEROL FUMARATE DIHYDRATE
     Indication: ASTHMA
     Dosage: 160/4.5 2 PUFFS
     Dates: start: 2012
  9. QVAR [Concomitant]
     Active Substance: BECLOMETHASONE DIPROPIONATE
     Indication: HYPERSENSITIVITY
     Dosage: 2 PUFFS NASAL PUFF
     Route: 045
     Dates: start: 2012
  10. MARINOL [Concomitant]
     Active Substance: DRONABINOL
     Indication: EHLERS-DANLOS SYNDROME
     Dosage: 5 MG, 3X/DAY (TID)
     Route: 048
     Dates: start: 2015
  11. SINGULAIR [Concomitant]
     Active Substance: MONTELUKAST SODIUM
     Indication: ASTHMA
     Dosage: 10 MG, ONCE DAILY (QD)
     Dates: start: 2012
  12. PROPRANOLOL [Concomitant]
     Active Substance: PROPRANOLOL\PROPRANOLOL HYDROCHLORIDE
     Indication: PRODUCT USED FOR UNKNOWN INDICATION
  13. ATARAX [Concomitant]
     Active Substance: HYDROXYZINE\HYDROXYZINE HYDROCHLORIDE
     Indication: HYPERSENSITIVITY
     Dosage: UNK
     Dates: start: 2012
  14. VIMPAT [Suspect]
     Active Substance: LACOSAMIDE
     Indication: NEUROPATHY PERIPHERAL
     Dosage: 100 MG, 2X/DAY (BID)
     Route: 048
     Dates: start: 201607, end: 201608
  15. KLONOPIN [Concomitant]
     Active Substance: CLONAZEPAM
     Indication: SLEEP DISORDER
     Dosage: 1 MG, ONCE DAILY (QD)
     Route: 048
     Dates: start: 2013
  16. ASTELIN [Concomitant]
     Active Substance: AZELASTINE HYDROCHLORIDE
     Indication: HYPERSENSITIVITY
     Dosage: 2 SPRAYS EACH NOSTRIL
     Dates: start: 2012
  17. XOLAIR [Concomitant]
     Active Substance: OMALIZUMAB
     Indication: HYPERSENSITIVITY
     Dosage: 1 SHOT
     Dates: start: 2015
  18. LEXAPRO [Concomitant]
     Active Substance: ESCITALOPRAM OXALATE
     Indication: DEPRESSION
     Dosage: 20 MG, ONCE DAILY (QD)
     Route: 048
     Dates: start: 2004

REACTIONS (3)
  - Asthenia [Recovering/Resolving]
  - Off label use [Unknown]
  - Hypokinesia [Recovering/Resolving]

NARRATIVE: CASE EVENT DATE: 201607
